FAERS Safety Report 23630100 (Version 1)
Quarter: 2024Q1

REPORT INFORMATION
  Report Type: Spontaneous
  Country: US (occurrence: US)
  Receive Date: 20240314
  Receipt Date: 20240314
  Transmission Date: 20240410
  Serious: No
  Sender: FDA-Public Use
  Company Number: US-CIPLA LTD.-2023US07312

PATIENT

DRUGS (1)
  1. SERTRALINE [Suspect]
     Active Substance: SERTRALINE HYDROCHLORIDE
     Indication: Product used for unknown indication
     Dosage: UNK, QD (EVERY NIGHT BEFORE PATIENT GOES TO BED)
     Route: 065

REACTIONS (1)
  - Adverse food reaction [Unknown]

NARRATIVE: CASE EVENT DATE: 20231114
